FAERS Safety Report 7107593-4 (Version None)
Quarter: 2010Q4

REPORT INFORMATION
  Report Type: 
  Country: None (occurrence: None)
  Receive Date: 20101117
  Receipt Date: 20101109
  Transmission Date: 20110411
  Serious: Yes (Hospitalization)
  Sender: FDA-Public Use
  Company Number: US-US-EMD SERONO, INC.-7010950

PATIENT
  Sex: Female

DRUGS (5)
  1. REBIF [Suspect]
     Indication: MULTIPLE SCLEROSIS
     Route: 058
     Dates: start: 20040101
  2. BACLOFEN [Concomitant]
     Indication: MUSCLE SPASMS
  3. ZANAFLEX [Concomitant]
     Indication: MUSCLE SPASMS
  4. ZOLOFT [Concomitant]
     Indication: DEPRESSION
  5. UNSPECIFIED MEDICATION [Concomitant]
     Indication: MUSCLE RELAXANT THERAPY

REACTIONS (3)
  - CELLULITIS [None]
  - INJECTION SITE ERYTHEMA [None]
  - INJECTION SITE PAIN [None]
